FAERS Safety Report 24832057 (Version 1)
Quarter: 2025Q1

REPORT INFORMATION
  Report Type: Spontaneous
  Country: US (occurrence: None)
  Receive Date: 20250109
  Receipt Date: 20250109
  Transmission Date: 20250409
  Serious: Yes (Death)
  Sender: FDA-CTU
  Company Number: None

PATIENT
  Age: 71 Year
  Sex: Female
  Weight: 106.14 kg

DRUGS (1)
  1. INFLECTRA [Suspect]
     Active Substance: INFLIXIMAB-DYYB
     Indication: Sarcoidosis
     Dosage: FREQUENCY : MONTHLY;?
     Route: 042
     Dates: start: 20200716, end: 20241213

REACTIONS (4)
  - Cardiac arrest [None]
  - Respiratory failure [None]
  - Sepsis [None]
  - Pneumonia bacterial [None]

NARRATIVE: CASE EVENT DATE: 20241219
